FAERS Safety Report 6719934-8 (Version None)
Quarter: 2010Q2

REPORT INFORMATION
  Report Type: 
  Country: None (occurrence: None)
  Receive Date: 20100511
  Receipt Date: 20100506
  Transmission Date: 20101027
  Serious: Yes (Other)
  Sender: FDA-Public Use
  Company Number: KR-BAYER-201024149GPV

PATIENT
  Age: 71 Year
  Sex: Female

DRUGS (1)
  1. SORAFENIB [Suspect]
     Indication: HEPATIC NEOPLASM MALIGNANT
     Dosage: TOTAL DAILY DOSE: 800 MG
     Route: 048
     Dates: start: 20100303, end: 20100428

REACTIONS (3)
  - DYSPNOEA [None]
  - HEPATIC NEOPLASM MALIGNANT [None]
  - PALMAR-PLANTAR ERYTHRODYSAESTHESIA SYNDROME [None]
